APPROVED DRUG PRODUCT: NATEGLINIDE
Active Ingredient: NATEGLINIDE
Strength: 60MG
Dosage Form/Route: TABLET;ORAL
Application: A205055 | Product #001
Applicant: ALVOGEN INC
Approved: Dec 11, 2015 | RLD: No | RS: No | Type: DISCN